FAERS Safety Report 7461918-9 (Version None)
Quarter: 2011Q2

REPORT INFORMATION
  Report Type: 
  Country: None (occurrence: None)
  Receive Date: 20110506
  Receipt Date: 20091220
  Transmission Date: 20111010
  Serious: Yes (Death, Hospitalization, Other)
  Sender: FDA-Public Use
  Company Number: US-BAYER-200943162NA

PATIENT
  Age: 66 Year
  Sex: Male
  Weight: 85.261 kg

DRUGS (25)
  1. DILANTIN [Concomitant]
     Dosage: 300 MG TWICE PER
     Route: 048
     Dates: start: 19700101
  2. PEPCID [Concomitant]
     Dosage: UNK
     Route: 048
     Dates: start: 19700101, end: 20040101
  3. TRASYLOL [Suspect]
     Indication: CORONARY ARTERY BYPASS
  4. IMDUR [Concomitant]
     Dosage: 60 MG, QD
     Route: 048
  5. FOLIC ACID [Concomitant]
     Dosage: 1 MG, QD
  6. HEPARIN [Concomitant]
     Dosage: UNK
     Route: 042
     Dates: start: 20040428
  7. MANNITOL [Concomitant]
     Dosage: 50 ML, UNK
     Route: 042
     Dates: start: 20040428
  8. ETOMIDATE [Concomitant]
     Dosage: 20 MG, UNK
     Route: 042
     Dates: start: 20040428
  9. DIGOXIN [Concomitant]
     Dosage: 0.25 MG, QD
     Route: 048
  10. CLONIDINE [Concomitant]
     Dosage: 0.2 MG, Q8HOURS
     Route: 048
  11. HEPARIN [Concomitant]
     Dosage: 5000 U, BID
     Route: 058
  12. CALCIUM [Concomitant]
     Dosage: 500 MG, QD
     Route: 048
  13. LASIX [Concomitant]
     Dosage: UNK
     Route: 048
     Dates: start: 20040401
  14. PRIMIDONE [Concomitant]
     Dosage: UNK
     Route: 048
     Dates: end: 20040101
  15. NATRECOR [Concomitant]
     Dosage: UNK
     Route: 042
     Dates: start: 20040428
  16. SUFENTANIL [Concomitant]
     Dosage: UNK, UNK
     Route: 042
     Dates: start: 20040428
  17. THYROID TAB [Concomitant]
     Dosage: UNK
     Route: 048
     Dates: start: 20040401
  18. TRASYLOL [Suspect]
     Indication: AORTIC VALVE REPLACEMENT
     Dosage: 200 ML, LOADING DOSE
     Route: 042
     Dates: start: 20040428, end: 20040428
  19. PROTAMINE SULFATE [Concomitant]
     Dosage: UNK
     Route: 042
     Dates: start: 20040428
  20. ANCEF [Concomitant]
     Dosage: 1 G, UNK
     Route: 042
     Dates: start: 20040428
  21. NORVASC [Concomitant]
     Dosage: 10 MG, QD
     Route: 048
  22. TRASYLOL [Suspect]
     Indication: MITRAL VALVE REPAIR
     Dosage: 50 ML/HOUR INFUSION
     Route: 042
     Dates: start: 20040428
  23. POTASSIUM CHLORIDE [Concomitant]
     Dosage: 10 MEQ, QD
     Route: 048
  24. COREG [Concomitant]
     Dosage: UNK
     Route: 048
     Dates: start: 20040401
  25. VERSED [Concomitant]
     Dosage: 10 G, UNK
     Route: 042
     Dates: start: 20040428

REACTIONS (8)
  - RENAL FAILURE ACUTE [None]
  - CARDIAC FAILURE CONGESTIVE [None]
  - UNEVALUABLE EVENT [None]
  - RENAL FAILURE [None]
  - EMOTIONAL DISTRESS [None]
  - DEATH [None]
  - INJURY [None]
  - PAIN [None]
